FAERS Safety Report 7152294-X (Version None)
Quarter: 2010Q4

REPORT INFORMATION
  Report Type: 
  Country: None (occurrence: None)
  Receive Date: 20101123
  Receipt Date: 20101118
  Transmission Date: 20110411
  Serious: Yes (Other)
  Sender: FDA-Public Use
  Company Number: 2010SP019461

PATIENT
  Age: 29 Year
  Sex: Female

DRUGS (1)
  1. NUVARING [Suspect]
     Indication: CONTRACEPTION
     Dosage: 0.135 MG; VAG
     Route: 067
     Dates: start: 20100104, end: 20100209

REACTIONS (7)
  - AGGRESSION [None]
  - ANGER [None]
  - FATIGUE [None]
  - IRRITABILITY [None]
  - MENORRHAGIA [None]
  - PHLEBITIS SUPERFICIAL [None]
  - VAGINAL DISCHARGE [None]
